FAERS Safety Report 9531883 (Version 2)
Quarter: 2013Q3

REPORT INFORMATION
  Report Type: Spontaneous
  Country: US (occurrence: US)
  Receive Date: 20130918
  Receipt Date: 20130920
  Transmission Date: 20140515
  Serious: Yes (Other)
  Sender: FDA-Public Use
  Company Number: US-PFIZER INC-2013267709

PATIENT
  Age: 45 Year
  Sex: Female
  Weight: 79.37 kg

DRUGS (9)
  1. NEURONTIN [Suspect]
     Indication: NEURALGIA
     Dosage: 1200 MG, 2X/DAY
  2. NEURONTIN [Suspect]
     Dosage: 400 MG, 3X/DAY
     Route: 048
  3. HYDROCHLOROTHIAZIDE [Suspect]
     Indication: OEDEMA PERIPHERAL
     Dosage: 12.5 MG, 1X/DAY
     Dates: start: 2013, end: 2013
  4. CYMBALTA [Suspect]
     Indication: NEURALGIA
     Dosage: 30 MG, 2X/DAY
  5. LASIX [Suspect]
     Indication: OEDEMA PERIPHERAL
     Dosage: 40 MG, 1X/DAY
     Dates: start: 2013, end: 2013
  6. LANTUS [Concomitant]
     Indication: DIABETES MELLITUS
     Dosage: 72 IU, 1X/DAY
  7. SPIRONOLACTONE [Concomitant]
     Dosage: UNK
  8. OXYCONTIN [Concomitant]
     Dosage: UNK
  9. MORPHINE [Concomitant]
     Dosage: UNK

REACTIONS (4)
  - Oedema peripheral [Recovering/Resolving]
  - Joint swelling [Recovering/Resolving]
  - Neuralgia [Unknown]
  - Drug ineffective [Unknown]
